FAERS Safety Report 21559717 (Version 9)
Quarter: 2024Q3

REPORT INFORMATION
  Report Type: Spontaneous
  Country: US (occurrence: US)
  Receive Date: 20221107
  Receipt Date: 20240909
  Transmission Date: 20241016
  Serious: No
  Sender: DAIICHI
  Company Number: US-DSJP-DSU-2022-139805AA

PATIENT
  Sex: Male

DRUGS (4)
  1. TURALIO [Suspect]
     Active Substance: PEXIDARTINIB HYDROCHLORIDE
     Indication: Synovitis
     Dosage: 2 CAPSULES, BID
     Route: 048
     Dates: start: 20210121
  2. TURALIO [Suspect]
     Active Substance: PEXIDARTINIB HYDROCHLORIDE
     Indication: Giant cell tumour of tendon sheath
     Dosage: 200 MG
     Route: 065
  3. LEVETIRACETAM [Concomitant]
     Active Substance: LEVETIRACETAM
     Indication: Product used for unknown indication
     Dosage: UNK
     Route: 065
  4. CHOLECALCIFEROL [Concomitant]
     Active Substance: CHOLECALCIFEROL
     Indication: Product used for unknown indication
     Dosage: 25 MG, QD
     Route: 065

REACTIONS (6)
  - Hypersomnia [Unknown]
  - Fatigue [Unknown]
  - Therapy interrupted [Unknown]
  - Product use issue [Unknown]
  - Product use issue [Unknown]
  - Product dose omission issue [Unknown]

NARRATIVE: CASE EVENT DATE: 20230101
